FAERS Safety Report 18440753 (Version 1)
Quarter: 2020Q4

REPORT INFORMATION
  Report Type: Spontaneous
  Country: US (occurrence: US)
  Receive Date: 20201029
  Receipt Date: 20201029
  Transmission Date: 20210114
  Serious: Yes (Hospitalization)
  Sender: FDA-Public Use
  Company Number: None

PATIENT
  Age: 12 Year
  Sex: Female
  Weight: 49.5 kg

DRUGS (5)
  1. DINUTUXIMAB (CHIMERIC MONOCLONAL ANTIBODY 14.18) [Suspect]
     Active Substance: DINUTUXIMAB
     Dates: end: 20201019
  2. ACCUTANE [Suspect]
     Active Substance: ISOTRETINOIN
     Dates: end: 20201012
  3. MORPHINE [Concomitant]
     Active Substance: MORPHINE
  4. LEUKINE [Suspect]
     Active Substance: SARGRAMOSTIM
     Dates: end: 20201026
  5. METHADONE [Concomitant]
     Active Substance: METHADONE HYDROCHLORIDE

REACTIONS (7)
  - Acute kidney injury [None]
  - Headache [None]
  - Muscle twitching [None]
  - Hypertension [None]
  - Unresponsive to stimuli [None]
  - Posterior reversible encephalopathy syndrome [None]
  - Gaze palsy [None]

NARRATIVE: CASE EVENT DATE: 20201026
